FAERS Safety Report 16176300 (Version 1)
Quarter: 2019Q2

REPORT INFORMATION
  Report Type: Spontaneous
  Country: FR (occurrence: FR)
  Receive Date: 20190409
  Receipt Date: 20190409
  Transmission Date: 20190711
  Serious: Yes (Hospitalization)
  Sender: FDA-Public Use
  Company Number: FR-MYLANLABS-2019M1032909

PATIENT
  Age: 75 Year
  Sex: Male

DRUGS (6)
  1. PREVISCAN                          /00789001/ [Interacting]
     Active Substance: FLUINDIONE
     Indication: CARDIAC VALVE PROSTHESIS USER
     Dosage: 25 MILLIGRAM, QD
     Route: 048
     Dates: start: 200512
  2. IXPRIM [Interacting]
     Active Substance: ACETAMINOPHEN\TRAMADOL HYDROCHLORIDE
     Indication: PAIN
     Dosage: 3 DOSAGE FORM, QD
     Route: 048
     Dates: start: 20180605, end: 20180610
  3. DOLIPRANE [Interacting]
     Active Substance: ACETAMINOPHEN
     Indication: PAIN
     Dosage: 500 MILLIGRAM, QD
     Dates: start: 20180605, end: 20180610
  4. PREDNISONE. [Interacting]
     Active Substance: PREDNISONE
     Indication: PAIN
     Dosage: 60 MILLIGRAM, QD
     Route: 048
     Dates: start: 20180605, end: 20180610
  5. ACUPAN [Interacting]
     Active Substance: NEFOPAM HYDROCHLORIDE
     Indication: PAIN
     Dosage: MAXIMUM 4 AMPOULES PAR JOUR
     Route: 042
     Dates: start: 20180613, end: 20180620
  6. TRAMADOL. [Suspect]
     Active Substance: TRAMADOL
     Indication: PAIN
     Dosage: 200 MILLIGRAM, QD
     Route: 048
     Dates: start: 20180613, end: 20180620

REACTIONS (3)
  - Potentiating drug interaction [Recovered/Resolved]
  - International normalised ratio increased [Recovered/Resolved]
  - Haematoma [Recovered/Resolved]

NARRATIVE: CASE EVENT DATE: 20180605
